FAERS Safety Report 5098366-5 (Version None)
Quarter: 2006Q3

REPORT INFORMATION
  Report Type: 
  Country: None (occurrence: None)
  Receive Date: 20060906
  Receipt Date: 20031111
  Transmission Date: 20061208
  Serious: Yes (Hospitalization, Other)
  Sender: FDA-Public Use
  Company Number: JP-BRISTOL-MYERS SQUIBB COMPANY-12434122

PATIENT
  Age: 62 Year
  Sex: Female

DRUGS (2)
  1. BRIPLATIN [Suspect]
     Indication: GASTRIC CANCER
     Dosage: DAY 1 INITIAL DOSE 08-OCT-2002
     Route: 042
     Dates: start: 20021112, end: 20021112
  2. TS-1 [Suspect]
     Indication: GASTRIC CANCER
     Dosage: INITIAL DOSE: 01-OCT-2002
     Route: 048
     Dates: start: 20021119, end: 20021119

REACTIONS (2)
  - GASTROINTESTINAL HAEMORRHAGE [None]
  - HAEMOGLOBIN DECREASED [None]
